FAERS Safety Report 9066644 (Version 1)
Quarter: 2013Q1

REPORT INFORMATION
  Report Type: Spontaneous
  Country: IT (occurrence: IT)
  Receive Date: 20130214
  Receipt Date: 20130214
  Transmission Date: 20140127
  Serious: Yes (Hospitalization)
  Sender: FDA-Public Use
  Company Number: IT-BAYER-2013-016865

PATIENT
  Age: 83 Year
  Sex: Male

DRUGS (7)
  1. CARDIOASPIRIN [Suspect]
     Indication: PLATELET AGGREGATION INHIBITION
     Dosage: 100 MG, QD
     Route: 048
     Dates: start: 20020101, end: 20120719
  2. CIPROXIN 500 MG FILM-COATED TABLETS [Suspect]
     Dosage: 500 MG, QD
     Route: 048
     Dates: start: 20120712, end: 20120718
  3. BISOPROLOL [Concomitant]
     Indication: HYPERTENSIVE HEART DISEASE
     Dosage: 2.5 MG, QD
     Route: 048
  4. LANOXIN [Concomitant]
     Indication: HYPERTENSIVE HEART DISEASE
     Dosage: 62.5 ?G, QD
     Route: 048
  5. TRIATEC [Concomitant]
     Indication: HYPERTENSION
     Dosage: 2.5 MG, QD
     Route: 048
  6. FINASTID [Concomitant]
     Indication: BENIGN PROSTATIC HYPERPLASIA
     Dosage: 5 MG, QD
     Route: 048
  7. PRADIF [Concomitant]
     Indication: BENIGN PROSTATIC HYPERPLASIA
     Dosage: 0.4 MG, QD
     Route: 048

REACTIONS (2)
  - Haematuria [Recovering/Resolving]
  - Urethral haemorrhage [Recovering/Resolving]
